FAERS Safety Report 5814244-5 (Version None)
Quarter: 2008Q3

REPORT INFORMATION
  Report Type: 
  Country: None (occurrence: None)
  Receive Date: 20080717
  Receipt Date: 20080715
  Transmission Date: 20090109
  Serious: Yes (Other)
  Sender: FDA-Public Use
  Company Number: US-RB-002153-08

PATIENT
  Sex: Female

DRUGS (4)
  1. SUBUTEX [Suspect]
     Indication: DRUG DEPENDENCE
     Route: 060
     Dates: start: 20080528, end: 20080701
  2. SUBOXONE [Suspect]
     Indication: DRUG DEPENDENCE
     Route: 060
     Dates: start: 20080401, end: 20080527
  3. SUBOXONE [Suspect]
     Route: 060
     Dates: start: 20080701
  4. FLINTSTONES VITAMINS [Concomitant]
     Indication: PREGNANCY
     Dosage: 2 CHEWABLE TABLETS DAILY
     Route: 048

REACTIONS (3)
  - ABORTION SPONTANEOUS [None]
  - DRUG EXPOSURE DURING PREGNANCY [None]
  - NAUSEA [None]
